FAERS Safety Report 5648620-0 (Version None)
Quarter: 2008Q1

REPORT INFORMATION
  Report Type: 
  Country: None (occurrence: None)
  Receive Date: 20080304
  Receipt Date: 20080221
  Transmission Date: 20080703
  Serious: Yes (Other)
  Sender: FDA-Public Use
  Company Number: US-AMGEN-QUU246480

PATIENT
  Sex: Male
  Weight: 93.5 kg

DRUGS (10)
  1. ENBREL [Suspect]
     Indication: PSORIATIC ARTHROPATHY
     Route: 058
     Dates: start: 20041001, end: 20070901
  2. ENBREL [Suspect]
     Indication: SPONDYLITIS
  3. ENBREL [Suspect]
     Indication: PSORIASIS
  4. METHOTREXATE [Concomitant]
     Indication: PSORIATIC ARTHROPATHY
     Dates: start: 19950801
  5. PREDNISONE TAB [Concomitant]
     Dates: start: 19950101
  6. FOLIC ACID [Concomitant]
     Dates: start: 19950101
  7. MOBIC [Concomitant]
     Dates: start: 20050101
  8. COUMADIN [Concomitant]
  9. ASPIRIN [Concomitant]
  10. LANOXIN [Concomitant]

REACTIONS (6)
  - ARTHRALGIA [None]
  - ATRIAL FIBRILLATION [None]
  - CARDIOMYOPATHY [None]
  - GASTROINTESTINAL HAEMORRHAGE [None]
  - HIATUS HERNIA [None]
  - LEFT VENTRICULAR DYSFUNCTION [None]
